FAERS Safety Report 15727175 (Version 2)
Quarter: 2019Q3

REPORT INFORMATION
  Report Type: Report from Study
  Country: US (occurrence: US)
  Receive Date: 20181217
  Receipt Date: 20190914
  Transmission Date: 20191004
  Serious: Yes (Other)
  Sender: FDA-Public Use
  Company Number: US-ROCHE-2228011

PATIENT
  Sex: Female

DRUGS (2)
  1. PEGINTERFERON ALFA-2A. [Suspect]
     Active Substance: PEGINTERFERON ALFA-2A
     Indication: CHRONIC HEPATITIS B
     Route: 058
  2. TENOFOVIR [Suspect]
     Active Substance: TENOFOVIR
     Indication: CHRONIC HEPATITIS B
     Route: 048

REACTIONS (3)
  - Intraductal proliferative breast lesion [Recovering/Resolving]
  - Invasive ductal breast carcinoma [Recovered/Resolved]
  - Breast calcifications [Unknown]

NARRATIVE: CASE EVENT DATE: 20160606
